FAERS Safety Report 19708055 (Version 1)
Quarter: 2021Q3

REPORT INFORMATION
  Report Type: Spontaneous
  Country: DE (occurrence: DE)
  Receive Date: 20210816
  Receipt Date: 20210816
  Transmission Date: 20211014
  Serious: Yes (Hospitalization, Other)
  Sender: FDA-Public Use
  Company Number: DE-009507513-2108DEU002348

PATIENT
  Age: 80 Year
  Sex: Male

DRUGS (10)
  1. PEMBROLIZUMAB. [Suspect]
     Active Substance: PEMBROLIZUMAB
     Dosage: UNK, SOLUTION FOR INJECTION / INFUSION
     Route: 042
  2. METOPROLOL. [Concomitant]
     Active Substance: METOPROLOL
     Dosage: 95 MG, 1?0?1?0, EXTENDED?RELEASE TABLETS, PROLONGED?RELEASE TABLET
     Route: 048
  3. LEVOTHYROXINE SODIUM. [Concomitant]
     Active Substance: LEVOTHYROXINE SODIUM
     Dosage: 50 ?G, 1.5?0?0?0, TABLET
     Route: 048
  4. ALLOPURINOL. [Concomitant]
     Active Substance: ALLOPURINOL
     Dosage: 300 MG, 0.5?0?0?0, TABLET
     Route: 048
  5. PEMETREXED. [Suspect]
     Active Substance: PEMETREXED
     Dosage: UNK, SOLUTION FOR INJECTION / INFUSION
     Route: 042
  6. ACETYLSALICYLIC ACID [Concomitant]
     Active Substance: ASPIRIN
     Dosage: 100 MG, 1?0?0?0, TABLET
     Route: 048
  7. SIMVASTATIN. [Concomitant]
     Active Substance: SIMVASTATIN
     Dosage: 20 MG, 0?0?2?0, TABLET
     Route: 048
  8. CARBOPLATIN. [Suspect]
     Active Substance: CARBOPLATIN
     Dosage: UNK, SOLUTION FOR INJECTION / INFUSION
     Route: 042
  9. EZETIMIBE ABZ [Concomitant]
     Dosage: 10 MG, 0?0?1?0, TABLET
     Route: 048
  10. RAMIPRIL. [Concomitant]
     Active Substance: RAMIPRIL
     Dosage: 2.5 MG, 1?0?0?0, TABLET
     Route: 048

REACTIONS (2)
  - Tachycardia [Unknown]
  - Arrhythmia [Unknown]
